FAERS Safety Report 24554699 (Version 2)
Quarter: 2024Q4

REPORT INFORMATION
  Report Type: Spontaneous
  Country: TR (occurrence: TR)
  Receive Date: 20241028
  Receipt Date: 20241104
  Transmission Date: 20250115
  Serious: Yes (Hospitalization)
  Sender: ROCHE
  Company Number: TR-ROCHE-10000113258

PATIENT
  Age: 30 Year
  Sex: Male
  Weight: 60 kg

DRUGS (2)
  1. OCREVUS [Suspect]
     Active Substance: OCRELIZUMAB
     Indication: Multiple sclerosis
     Dosage: RECEIVED LAST DOSE IN JUN/2024
     Route: 042
     Dates: start: 2022
  2. QUETIAPINE FUMARATE [Concomitant]
     Active Substance: QUETIAPINE FUMARATE
     Route: 048
     Dates: start: 20241016

REACTIONS (9)
  - Malaise [Not Recovered/Not Resolved]
  - Pyrexia [Not Recovered/Not Resolved]
  - Speech disorder [Not Recovered/Not Resolved]
  - Confusional state [Not Recovered/Not Resolved]
  - CSF pressure increased [Unknown]
  - Delirium [Not Recovered/Not Resolved]
  - CSF lymphocyte count increased [Not Recovered/Not Resolved]
  - Meningitis [Recovering/Resolving]
  - West Nile viral infection [Unknown]

NARRATIVE: CASE EVENT DATE: 20241010
